FAERS Safety Report 17151865 (Version 1)
Quarter: 2019Q4

REPORT INFORMATION
  Report Type: Report from Study
  Country: GB (occurrence: GB)
  Receive Date: 20191213
  Receipt Date: 20191213
  Transmission Date: 20200122
  Serious: Yes (Other)
  Sender: FDA-Public Use
  Company Number: GB-ROCHE-2496964

PATIENT
  Age: 6 Year
  Sex: Male

DRUGS (1)
  1. NUTROPIN AQ [Suspect]
     Active Substance: SOMATROPIN
     Indication: PRADER-WILLI SYNDROME
     Route: 058
     Dates: start: 20100226, end: 20110527

REACTIONS (3)
  - Off label use [Unknown]
  - Sleep apnoea syndrome [Not Recovered/Not Resolved]
  - Product use in unapproved indication [Unknown]
